FAERS Safety Report 8056321-7 (Version None)
Quarter: 2012Q1

REPORT INFORMATION
  Report Type: 
  Country: None (occurrence: None)
  Receive Date: 20120119
  Receipt Date: 20120109
  Transmission Date: 20120608
  Serious: Yes (Hospitalization, Other)
  Sender: FDA-Public Use
  Company Number: US-BAYER-2010-001643

PATIENT
  Age: 29 Year
  Sex: Female
  Weight: 57 kg

DRUGS (7)
  1. CITALOPRAM HYDROBROMIDE [Concomitant]
     Dosage: 10 MG, QD
     Route: 048
     Dates: start: 20061112
  2. BENTYL [Concomitant]
     Dosage: 20 MG, QD
     Route: 048
     Dates: start: 20061113
  3. WELLBUTRIN XL [Concomitant]
     Indication: DEPRESSION
     Dosage: 200 MG, UNK
     Route: 048
     Dates: start: 20040101
  4. YASMIN [Suspect]
     Indication: CONTRACEPTION
     Dosage: UNK
     Dates: start: 20040514, end: 20090108
  5. DROSPIRENONE AND ETHINYL ESTRADIOL [Suspect]
     Indication: CONTRACEPTION
     Dosage: UNK
     Dates: start: 20040514, end: 20090108
  6. ACIPHEX [Concomitant]
     Dosage: 40 MG, QD
     Route: 048
     Dates: start: 20061113
  7. PERCOCET [Concomitant]
     Dosage: UNK UNK, PRN
     Route: 048

REACTIONS (2)
  - CHOLELITHIASIS [None]
  - CHOLECYSTITIS CHRONIC [None]
